FAERS Safety Report 7283054-7 (Version None)
Quarter: 2011Q1

REPORT INFORMATION
  Report Type: 
  Country: None (occurrence: None)
  Receive Date: 20110209
  Receipt Date: 20110128
  Transmission Date: 20110831
  Serious: Yes (Hospitalization)
  Sender: FDA-Public Use
  Company Number: FR-ROCHE-563243

PATIENT
  Sex: Male
  Weight: 86.5 kg

DRUGS (10)
  1. ENFUVIRTIDE [Suspect]
     Indication: HIV INFECTION
     Route: 065
     Dates: start: 20080430
  2. TRUVADA [Suspect]
     Indication: HIV INFECTION
     Route: 065
     Dates: start: 20080430
  3. KALETRA [Suspect]
     Indication: HIV INFECTION
     Route: 065
     Dates: start: 20080430
  4. SULFAMETHOXAZOLE AND TRIMETHOPRIM [Suspect]
     Dosage: DRUG NAME: BACTRIM FORTE
     Route: 065
     Dates: start: 20080325
  5. BROMAZEPAM [Concomitant]
  6. PRIMPERAN TAB [Concomitant]
  7. VALGANCICLOVIR HCL [Suspect]
     Route: 065
     Dates: start: 20080426, end: 20080505
  8. VERAPAMIL [Concomitant]
  9. AZADOSE [Concomitant]
     Dosage: TDD: 1200 MG PER WEEK
     Dates: start: 20080414
  10. LOPERAMIDE [Concomitant]

REACTIONS (5)
  - NEUTROPENIA [None]
  - PYREXIA [None]
  - CYTOMEGALOVIRUS INFECTION [None]
  - DIARRHOEA [None]
  - GENERAL PHYSICAL HEALTH DETERIORATION [None]
